FAERS Safety Report 16063681 (Version 1)
Quarter: 2019Q1

REPORT INFORMATION
  Report Type: Report from Study
  Country: US (occurrence: US)
  Receive Date: 20190312
  Receipt Date: 20190312
  Transmission Date: 20190418
  Serious: Yes (Death)
  Sender: FDA-Public Use
  Company Number: US-PFIZER INC-2019102896

PATIENT

DRUGS (3)
  1. PENTOSTATIN. [Suspect]
     Active Substance: PENTOSTATIN
     Indication: NON-HODGKIN^S LYMPHOMA
     Dosage: 4 MG/M2, CYCLIC (6 X 21-DAY CYCLES)
  2. CYCLOPHOSPHAMIDE. [Suspect]
     Active Substance: CYCLOPHOSPHAMIDE
     Indication: NON-HODGKIN^S LYMPHOMA
     Dosage: 600 MG/M2, CYCLIC (6 X 21-DAY CYCLES)
  3. RITUXIMAB. [Suspect]
     Active Substance: RITUXIMAB
     Indication: NON-HODGKIN^S LYMPHOMA
     Dosage: 375 MG/M2, CYCLIC (6 X 21-DAY CYCLES)

REACTIONS (1)
  - Toxicity to various agents [Fatal]
